FAERS Safety Report 4451645-4 (Version None)
Quarter: 2004Q3

REPORT INFORMATION
  Report Type: 
  Country: None (occurrence: None)
  Receive Date: 20040915
  Receipt Date: 20040901
  Transmission Date: 20050211
  Serious: Yes (Life-Threatening, Other)
  Sender: FDA-Public Use
  Company Number: 2004019604

PATIENT
  Age: 39 Year
  Sex: Female

DRUGS (4)
  1. ZIPRASIDONE (CAPS) (ZIPRASIDONE) [Suspect]
     Indication: SCHIZOPHRENIA
     Dosage: 120 MG (2 IN 1 D), ORAL
     Route: 048
     Dates: start: 20040101
  2. CARBAMAZEPINE [Concomitant]
  3. CLONAZEPAM [Concomitant]
  4. LITHIUM CARBONATE [Concomitant]

REACTIONS (7)
  - DEPRESSED MOOD [None]
  - DERMATITIS ALLERGIC [None]
  - DYSPNOEA [None]
  - GENERALISED OEDEMA [None]
  - PRURITUS GENERALISED [None]
  - PSYCHOTIC DISORDER [None]
  - SOMNOLENCE [None]
